FAERS Safety Report 12091385 (Version 1)
Quarter: 2016Q1

REPORT INFORMATION
  Report Type: Spontaneous
  Country: US (occurrence: US)
  Receive Date: 20160218
  Receipt Date: 20160218
  Transmission Date: 20160526
  Serious: Yes (Other)
  Sender: FDA-Public Use
  Company Number: US-CELGENEUS-USA-2016022998

PATIENT
  Age: 60 Year
  Sex: Female

DRUGS (5)
  1. BACLOFEN. [Concomitant]
     Active Substance: BACLOFEN
     Indication: PRODUCT USED FOR UNKNOWN INDICATION
     Route: 065
     Dates: start: 2015
  2. HYDROCODONE [Concomitant]
     Active Substance: HYDROCODONE
     Indication: THERAPEUTIC PROCEDURE
     Route: 065
     Dates: start: 20151201
  3. OTEZLA [Suspect]
     Active Substance: APREMILAST
     Indication: PSORIATIC ARTHROPATHY
     Dosage: 60 MILLIGRAM
     Route: 048
     Dates: start: 20160208
  4. KEPPRA [Concomitant]
     Active Substance: LEVETIRACETAM
     Indication: NEURALGIA
     Route: 065
     Dates: start: 2015
  5. CELEBREX [Concomitant]
     Active Substance: CELECOXIB
     Indication: NEURALGIA
     Route: 065
     Dates: start: 20140801

REACTIONS (2)
  - Sneezing [Not Recovered/Not Resolved]
  - Headache [Not Recovered/Not Resolved]

NARRATIVE: CASE EVENT DATE: 20160211
